FAERS Safety Report 6767679-0 (Version None)
Quarter: 2010Q2

REPORT INFORMATION
  Report Type: 
  Country: None (occurrence: None)
  Receive Date: 20100614
  Receipt Date: 20100601
  Transmission Date: 20101027
  Serious: Yes (Hospitalization, Other)
  Sender: FDA-Public Use
  Company Number: US-ELI_LILLY_AND_COMPANY-US201006001790

PATIENT
  Sex: Female

DRUGS (6)
  1. FORTEO [Suspect]
     Indication: OSTEOPOROSIS
     Dosage: 20 UG, DAILY (1/D)
     Dates: start: 20100101
  2. ARTHROTEC [Concomitant]
  3. PROTONIX [Concomitant]
  4. ZANTAC [Concomitant]
  5. CARAFATE [Concomitant]
  6. PREMARIN [Concomitant]

REACTIONS (5)
  - ERYTHEMA [None]
  - GASTROENTERITIS [None]
  - OESOPHAGITIS [None]
  - PANCREATITIS [None]
  - SWELLING [None]
